FAERS Safety Report 4819917-9 (Version None)
Quarter: 2005Q4

REPORT INFORMATION
  Report Type: 
  Country: None (occurrence: None)
  Receive Date: 20051102
  Receipt Date: 20051018
  Transmission Date: 20060501
  Serious: Yes (Other)
  Sender: FDA-Public Use
  Company Number: S05-SWI-03647-01

PATIENT
  Age: 52 Year
  Sex: Female

DRUGS (11)
  1. ESCITALOPRAM OXALATE [Suspect]
     Indication: ANXIETY
     Dosage: 10 MG TID PO
     Route: 048
     Dates: start: 20050425, end: 20050425
  2. ESCITALOPRAM OXALATE [Suspect]
     Indication: SOMATOFORM DISORDER
     Dosage: 10 MG TID PO
     Route: 048
     Dates: start: 20050425, end: 20050425
  3. ESCITALOPRAM OXALATE [Suspect]
     Indication: ANXIETY
     Dosage: 10 MG  QD  PO
     Route: 048
     Dates: start: 20050426
  4. ESCITALOPRAM OXALATE [Suspect]
     Indication: SOMATOFORM DISORDER
     Dosage: 10 MG  QD  PO
     Route: 048
     Dates: start: 20050426
  5. ZYPREXA [Suspect]
     Indication: PANIC DISORDER
     Dosage: 5 MG QD PO
     Route: 048
     Dates: start: 20050421
  6. DORMICUM (NITRAZEPAM) [Suspect]
     Indication: ANXIETY
     Dosage: 15 MG BID PO
     Route: 048
     Dates: start: 20040101, end: 20050425
  7. DORMICUM (NITRAZEPAM) [Suspect]
     Indication: SOMATOFORM DISORDER
     Dosage: 15 MG BID PO
     Route: 048
     Dates: start: 20040101, end: 20050425
  8. DORMICUM (NITRAZEPAM) [Suspect]
     Indication: ANXIETY
     Dosage: 15 MG QD PO
     Route: 048
     Dates: start: 20050426
  9. DORMICUM (NITRAZEPAM) [Suspect]
     Indication: SOMATOFORM DISORDER
     Dosage: 15 MG QD PO
     Route: 048
     Dates: start: 20050426
  10. KEMADRIN [Suspect]
     Dosage: 5 MG PO
     Route: 048
     Dates: start: 20050101
  11. VALIUM [Suspect]
     Dosage: 10 DAILY IV
     Route: 042
     Dates: start: 20050428, end: 20050428

REACTIONS (2)
  - LOSS OF CONSCIOUSNESS [None]
  - MYOCLONUS [None]
